FAERS Safety Report 6226418-2 (Version None)
Quarter: 2009Q2

REPORT INFORMATION
  Report Type: 
  Country: None (occurrence: None)
  Receive Date: 20090612
  Receipt Date: 20090514
  Transmission Date: 20091009
  Serious: No
  Sender: FDA-Public Use
  Company Number: US-ABBOTT-09P-163-0573639-00

PATIENT
  Sex: Female
  Weight: 51.6 kg

DRUGS (5)
  1. HUMIRA [Suspect]
     Indication: CROHN'S DISEASE
     Route: 058
     Dates: start: 20081208, end: 20081208
  2. HUMIRA [Suspect]
     Route: 058
     Dates: start: 20081222, end: 20081222
  3. HUMIRA [Suspect]
     Route: 058
     Dates: start: 20090105
  4. MERCAPTOPURINE [Concomitant]
     Indication: CROHN'S DISEASE
  5. MULTIVITAMIN WITH CALCIUM AND VITAMIN D [Concomitant]
     Indication: DRUG USE FOR UNKNOWN INDICATION

REACTIONS (3)
  - INJECTION SITE ERYTHEMA [None]
  - INJECTION SITE PRURITUS [None]
  - INJECTION SITE SWELLING [None]
